FAERS Safety Report 7998630-3 (Version None)
Quarter: 2011Q4

REPORT INFORMATION
  Report Type: 
  Country: None (occurrence: None)
  Receive Date: 20111221
  Receipt Date: 20111219
  Transmission Date: 20120403
  Serious: Yes (Hospitalization)
  Sender: FDA-Public Use
  Company Number: HU-ROCHE-1020441

PATIENT
  Sex: Female
  Weight: 60 kg

DRUGS (5)
  1. DOXIUM [Concomitant]
     Dates: start: 19980101
  2. RANIBIZUMAB [Suspect]
     Dates: start: 20110819
  3. RANIBIZUMAB [Suspect]
     Indication: DIABETIC RETINAL OEDEMA
     Route: 050
     Dates: start: 20081212, end: 20081212
  4. NITROMINT [Concomitant]
     Dates: start: 20080101
  5. NORMODIPINE [Concomitant]
     Dates: start: 20070101

REACTIONS (3)
  - ACUTE MYOCARDIAL INFARCTION [None]
  - CARDIAC FAILURE [None]
  - ACUTE FEBRILE NEUTROPHILIC DERMATOSIS [None]
